FAERS Safety Report 4769827-0 (Version None)
Quarter: 2005Q3

REPORT INFORMATION
  Report Type: 
  Country: None (occurrence: None)
  Receive Date: 20050915
  Receipt Date: 20050908
  Transmission Date: 20060218
  Serious: Yes (Death)
  Sender: FDA-Public Use
  Company Number: US-BRISTOL-MYERS SQUIBB COMPANY-13103502

PATIENT
  Age: 59 Year
  Sex: Female
  Weight: 97 kg

DRUGS (8)
  1. COUMADIN [Suspect]
     Indication: ATRIAL FIBRILLATION
     Dosage: 7.5 MG TUES, WED, THURS, SAT, AND SUN; 3.5 MG FRI AND MON
     Dates: start: 20031201, end: 20050101
  2. PRAVACHOL [Suspect]
     Dates: end: 20050101
  3. K-DUR 10 [Concomitant]
     Dates: end: 20050101
  4. HYDROCHLOROTHIAZIDE [Concomitant]
     Dates: end: 20050101
  5. PAXIL CR [Concomitant]
     Dates: end: 20050101
  6. LOTREL [Concomitant]
     Dosage: 5/20 MG BID
     Dates: end: 20050101
  7. MOBIC [Concomitant]
     Dates: end: 20050101
  8. LASIX [Concomitant]
     Dates: end: 20050101

REACTIONS (1)
  - MYOCARDIAL INFARCTION [None]
